FAERS Safety Report 9159248 (Version 1)
Quarter: 2013Q1

REPORT INFORMATION
  Report Type: Spontaneous
  Country: US (occurrence: US)
  Receive Date: 20130313
  Receipt Date: 20130313
  Transmission Date: 20140127
  Serious: Yes (Other)
  Sender: FDA-Public Use
  Company Number: US-BAYER-2013-031288

PATIENT
  Age: 65 Year
  Sex: Male
  Weight: 89.81 kg

DRUGS (3)
  1. XARELTO [Suspect]
     Indication: THROMBOSIS PROPHYLAXIS
     Route: 048
     Dates: start: 20130111, end: 20130116
  2. ACETYLSALICYLIC ACID({=100 MG) [Interacting]
     Route: 065
  3. PERSANTINE [Suspect]
     Indication: PRODUCT USED FOR UNKNOWN INDICATION
     Route: 065

REACTIONS (10)
  - Injection site haemorrhage [Recovered/Resolved]
  - Abdominal discomfort [Recovered/Resolved]
  - Abasia [Recovered/Resolved]
  - Weight increased [Recovered/Resolved]
  - Retching [Recovered/Resolved]
  - Aphagia [Recovered/Resolved]
  - Vomiting [None]
  - General physical health deterioration [None]
  - Product quality issue [None]
  - Abdominal discomfort [None]
